FAERS Safety Report 12492685 (Version 1)
Quarter: 2016Q2

REPORT INFORMATION
  Report Type: Spontaneous
  Country: CH (occurrence: CH)
  Receive Date: 20160623
  Receipt Date: 20160623
  Transmission Date: 20160815
  Serious: Yes (Other)
  Sender: FDA-Public Use
  Company Number: CH-PFIZER INC-2016295990

PATIENT
  Age: 51 Year
  Sex: Female

DRUGS (2)
  1. TEMESTA [Suspect]
     Active Substance: LORAZEPAM
     Dosage: DAILY
     Route: 048
     Dates: start: 2013
  2. TEMESTA [Suspect]
     Active Substance: LORAZEPAM
     Dosage: UNK, AS NEEDED
     Route: 048
     Dates: start: 2007, end: 2013

REACTIONS (14)
  - Glaucoma [Unknown]
  - Visual impairment [Unknown]
  - Gait disturbance [Unknown]
  - Fall [Unknown]
  - Sexual dysfunction [Unknown]
  - Drug dependence [Unknown]
  - Muscle spasms [Unknown]
  - Vomiting [Unknown]
  - Balance disorder [Unknown]
  - Feeling abnormal [Unknown]
  - Nausea [Unknown]
  - Palpitations [Unknown]
  - Circulatory collapse [Unknown]
  - Back pain [Unknown]

NARRATIVE: CASE EVENT DATE: 20150708
